FAERS Safety Report 8242257-5 (Version None)
Quarter: 2012Q1

REPORT INFORMATION
  Report Type: 
  Country: None (occurrence: None)
  Receive Date: 20120314
  Receipt Date: 20101011
  Transmission Date: 20120608
  Serious: Yes (Other)
  Sender: FDA-Public Use
  Company Number: PHHY2010US68028

PATIENT
  Age: 64 Year
  Sex: Female

DRUGS (1)
  1. FANAPT [Suspect]
     Indication: SCHIZOAFFECTIVE DISORDER BIPOLAR TYPE
     Dosage: 6 MG, BID, ORAL
     Route: 048

REACTIONS (1)
  - CONVULSION [None]
